FAERS Safety Report 23393487 (Version 1)
Quarter: 2024Q1

REPORT INFORMATION
  Report Type: Spontaneous
  Country: FR (occurrence: FR)
  Receive Date: 20240111
  Receipt Date: 20240111
  Transmission Date: 20240410
  Serious: Yes (Hospitalization)
  Sender: FDA-Public Use
  Company Number: None

PATIENT
  Age: 58 Year
  Sex: Male
  Weight: 62.4 kg

DRUGS (3)
  1. INFLIXIMAB [Suspect]
     Active Substance: INFLIXIMAB
     Indication: Psoriatic arthropathy
     Dosage: 300 MG
     Route: 042
     Dates: start: 20230427, end: 20230927
  2. NOREPINEPHRINE [Concomitant]
     Active Substance: NOREPINEPHRINE
     Indication: Myocardial ischaemia
     Dosage: UNKNOWN
     Route: 065
     Dates: start: 202304
  3. TICAGRELOR [Concomitant]
     Active Substance: TICAGRELOR
     Indication: Acute coronary syndrome
     Dosage: UNKNOWN
     Route: 065

REACTIONS (1)
  - Pericarditis [Recovered/Resolved]

NARRATIVE: CASE EVENT DATE: 20231108
